FAERS Safety Report 17130880 (Version 1)
Quarter: 2019Q4

REPORT INFORMATION
  Report Type: Spontaneous
  Country: US (occurrence: US)
  Receive Date: 20191209
  Receipt Date: 20191209
  Transmission Date: 20200122
  Serious: No
  Sender: FDA-Public Use
  Company Number: US-ROCHE-2359028

PATIENT
  Age: 61 Year
  Sex: Male

DRUGS (3)
  1. POTASSIUM CHLORIDE. [Concomitant]
     Active Substance: POTASSIUM CHLORIDE
     Route: 042
  2. DIAZEPAM. [Suspect]
     Active Substance: DIAZEPAM
     Indication: POSTOPERATIVE ANALGESIA
     Route: 042
  3. FENTANYL. [Concomitant]
     Active Substance: FENTANYL
     Route: 065

REACTIONS (2)
  - Product preparation error [Unknown]
  - No adverse event [Unknown]
